FAERS Safety Report 13777300 (Version 2)
Quarter: 2017Q3

REPORT INFORMATION
  Report Type: Report from Study
  Country: US (occurrence: US)
  Receive Date: 20170721
  Receipt Date: 20170726
  Transmission Date: 20171127
  Serious: Yes (Death, Other)
  Sender: FDA-Public Use
  Company Number: US-JNJFOC-20170714567

PATIENT

DRUGS (4)
  1. METHOTREXATE. [Concomitant]
     Active Substance: METHOTREXATE
     Route: 065
  2. AZATHIOPRINE. [Concomitant]
     Active Substance: AZATHIOPRINE
     Route: 065
  3. REMICADE [Suspect]
     Active Substance: INFLIXIMAB
     Indication: CROHN^S DISEASE
     Route: 042
  4. MERCAPTOPURINE. [Concomitant]
     Active Substance: MERCAPTOPURINE
     Route: 065

REACTIONS (23)
  - Hypersensitivity [Unknown]
  - Upper respiratory tract infection [Unknown]
  - Influenza like illness [Unknown]
  - Arthralgia [Unknown]
  - Breast cancer [Unknown]
  - Lupus-like syndrome [Unknown]
  - Drug specific antibody present [Unknown]
  - Headache [Unknown]
  - Basal cell carcinoma [Unknown]
  - Myocardial infarction [Fatal]
  - Serum sickness [Unknown]
  - Renal cell carcinoma [Unknown]
  - Bladder cancer [Unknown]
  - Infection [Unknown]
  - Natural killer-cell lymphoblastic lymphoma [Unknown]
  - Sepsis [Fatal]
  - Rash [Unknown]
  - Abdominal pain [Unknown]
  - Infusion related reaction [Unknown]
  - Double stranded DNA antibody [Unknown]
  - Drug ineffective [Unknown]
  - Neoplasm skin [Unknown]
  - Antinuclear antibody [Unknown]
